FAERS Safety Report 21208659 (Version 1)
Quarter: 2022Q3

REPORT INFORMATION
  Report Type: Spontaneous
  Country: IT (occurrence: IT)
  Receive Date: 20220812
  Receipt Date: 20220812
  Transmission Date: 20221027
  Serious: Yes (Hospitalization)
  Sender: FDA-Public Use
  Company Number: IT-MYLANLABS-2022M1085670

PATIENT
  Sex: Female
  Weight: 4.07 kg

DRUGS (6)
  1. FUROSEMIDE [Suspect]
     Active Substance: FUROSEMIDE
     Indication: Hypercalcaemia
     Dosage: 3 MILLIGRAM/KILOGRAM, QD
     Route: 065
  2. FUROSEMIDE [Suspect]
     Active Substance: FUROSEMIDE
     Indication: Diuretic therapy
     Dosage: THERAPY WAS RESUMED
     Route: 065
  3. SPIRONOLACTONE [Suspect]
     Active Substance: SPIRONOLACTONE
     Indication: Hypercalcaemia
     Dosage: 1 MILLIGRAM/KILOGRAM, QD
     Route: 065
  4. SPIRONOLACTONE [Suspect]
     Active Substance: SPIRONOLACTONE
     Indication: Diuretic therapy
     Dosage: THERAPY WAS RESUMED
     Route: 065
  5. SALINE [Concomitant]
     Active Substance: SODIUM CHLORIDE
     Indication: Hypervolaemia
     Dosage: 50ML/KG
     Route: 042
  6. HYDROCORTISONE [Concomitant]
     Active Substance: HYDROCORTISONE
     Indication: Hypercalcaemia
     Dosage: 2 MILLIGRAM/KILOGRAM, QD, RECEIVED GRADUATED DOSES
     Route: 065

REACTIONS (3)
  - Rebound effect [Recovered/Resolved]
  - Hypercalcaemia [Recovered/Resolved]
  - Drug ineffective [Unknown]
